FAERS Safety Report 15992525 (Version 2)
Quarter: 2019Q2

REPORT INFORMATION
  Report Type: Spontaneous
  Country: IT (occurrence: IT)
  Receive Date: 20190221
  Receipt Date: 20190524
  Transmission Date: 20190711
  Serious: Yes (Hospitalization)
  Sender: FDA-Public Use
  Company Number: IT-009507513-1902ITA006741

PATIENT
  Age: 2 Year
  Sex: Male
  Weight: 15 kg

DRUGS (1)
  1. SINGULAIR [Suspect]
     Active Substance: MONTELUKAST SODIUM
     Dosage: 4 MILLIGRAM, QD

REACTIONS (1)
  - Seizure [Unknown]
